FAERS Safety Report 6499866-3 (Version None)
Quarter: 2009Q4

REPORT INFORMATION
  Report Type: 
  Country: None (occurrence: None)
  Receive Date: 20091214
  Receipt Date: 20091214
  Transmission Date: 20100525
  Serious: Yes (Other)
  Sender: FDA-Public Use
  Company Number: None

PATIENT
  Age: 29 Year
  Sex: Female
  Weight: 47.6277 kg

DRUGS (1)
  1. CYMBALTA [Suspect]
     Indication: DEPRESSION
     Dosage: 50 MG TWICE DAILY PO
     Route: 048

REACTIONS (12)
  - ABNORMAL BEHAVIOUR [None]
  - ANGER [None]
  - CRYING [None]
  - DIZZINESS [None]
  - DRUG EFFECT DECREASED [None]
  - EYE MOVEMENT DISORDER [None]
  - FEAR [None]
  - IMPAIRED WORK ABILITY [None]
  - MOOD SWINGS [None]
  - MOVEMENT DISORDER [None]
  - PARAESTHESIA [None]
  - WITHDRAWAL SYNDROME [None]
